FAERS Safety Report 26049209 (Version 1)
Quarter: 2025Q4

REPORT INFORMATION
  Report Type: Spontaneous
  Country: JP (occurrence: JP)
  Receive Date: 20251115
  Receipt Date: 20251115
  Transmission Date: 20260117
  Serious: Yes (Hospitalization)
  Sender: ALEXION PHARMACEUTICALS
  Company Number: JP-AstraZeneca-CH-00945483A

PATIENT
  Age: 56 Year
  Sex: Female
  Weight: 47.5 kg

DRUGS (5)
  1. FASLODEX [Suspect]
     Active Substance: FULVESTRANT
     Indication: Breast cancer
     Dosage: 500 MILLIGRAM, QD
     Route: 065
     Dates: start: 20250731
  2. TRUQAP [Suspect]
     Active Substance: CAPIVASERTIB
     Indication: Breast cancer
     Dosage: 400 MILLIGRAM, BID
     Dates: start: 20250829
  3. CALCIUM CARBONATE\CHOLECALCIFEROL\MAGNESIUM CARBONATE [Concomitant]
     Active Substance: CALCIUM CARBONATE\CHOLECALCIFEROL\MAGNESIUM CARBONATE
     Dosage: UNK
  4. VONOPRAZAN FUMARATE [Concomitant]
     Active Substance: VONOPRAZAN FUMARATE
     Indication: Gastritis
     Dosage: 10 MILLIGRAM
  5. LOXOPROFEN [Concomitant]
     Active Substance: LOXOPROFEN
     Indication: Pain
     Dosage: 60 MILLIGRAM

REACTIONS (1)
  - Hyperglycaemia [Recovered/Resolved]

NARRATIVE: CASE EVENT DATE: 20250901
